FAERS Safety Report 25134996 (Version 1)
Quarter: 2025Q1

REPORT INFORMATION
  Report Type: Spontaneous
  Country: US (occurrence: US)
  Receive Date: 20250328
  Receipt Date: 20250328
  Transmission Date: 20250408
  Serious: Yes (Other)
  Sender: UCB
  Company Number: US-UCBSA-2025017899

PATIENT

DRUGS (1)
  1. KEPPRA [Suspect]
     Active Substance: LEVETIRACETAM
     Indication: Product used for unknown indication

REACTIONS (7)
  - Generalised tonic-clonic seizure [Unknown]
  - Neck pain [Unknown]
  - Chest discomfort [Unknown]
  - Eye pain [Unknown]
  - Somnolence [Unknown]
  - Decreased appetite [Unknown]
  - Physical disability [Unknown]
